FAERS Safety Report 6016624-4 (Version None)
Quarter: 2008Q4

REPORT INFORMATION
  Report Type: 
  Country: None (occurrence: None)
  Receive Date: 20081222
  Receipt Date: 20081212
  Transmission Date: 20090506
  Serious: Yes (Other)
  Sender: FDA-Public Use
  Company Number: PHHY2008BE32062

PATIENT

DRUGS (2)
  1. DIOVAN HCT [Suspect]
     Indication: HYPERTENSION
  2. ASPIRIN [Concomitant]

REACTIONS (3)
  - COLECTOMY [None]
  - COLOSTOMY [None]
  - HYPERTENSION [None]
